FAERS Safety Report 4646021-5 (Version None)
Quarter: 2005Q2

REPORT INFORMATION
  Report Type: 
  Country: None (occurrence: None)
  Receive Date: 20050425
  Receipt Date: 20050410
  Transmission Date: 20051028
  Serious: Yes (Death, Other)
  Sender: FDA-Public Use
  Company Number: 2004023066

PATIENT
  Age: 48 Year
  Sex: Female
  Weight: 57.1532 kg

DRUGS (5)
  1. GEODON [Suspect]
     Indication: ANOREXIA
     Dosage: 160 MG 980 MG, 2 IN 1 D), ORAL
     Route: 048
     Dates: start: 20011201, end: 20040310
  2. GEODON [Suspect]
     Indication: THINKING ABNORMAL
     Dosage: 160 MG 980 MG, 2 IN 1 D), ORAL
     Route: 048
     Dates: start: 20011201, end: 20040310
  3. ALL OTHER THERAPEUTIC PRODUCTS (ALL OTHER THERAPEUTIC PRODUCTS) [Suspect]
     Indication: ILL-DEFINED DISORDER
  4. FLUOXETINE HCL [Concomitant]
  5. DIAZEPAM [Concomitant]

REACTIONS (6)
  - ARRHYTHMIA [None]
  - CARDIAC ARREST [None]
  - ELECTROLYTE IMBALANCE [None]
  - INTENTIONAL MISUSE [None]
  - SUICIDE ATTEMPT [None]
  - TREATMENT NONCOMPLIANCE [None]
